FAERS Safety Report 7103605-2 (Version None)
Quarter: 2010Q4

REPORT INFORMATION
  Report Type: 
  Country: None (occurrence: None)
  Receive Date: 20101115
  Receipt Date: 20091005
  Transmission Date: 20110411
  Serious: No
  Sender: FDA-Public Use
  Company Number: US-KINGPHARMUSA00001-K200901237

PATIENT
  Sex: Female
  Weight: 63.492 kg

DRUGS (2)
  1. LEVOXYL [Suspect]
     Indication: HYPOTHYROIDISM
     Dosage: 50 MCG, QD
     Route: 048
     Dates: start: 20090101
  2. PREMPRO [Concomitant]
     Dosage: UNK

REACTIONS (2)
  - RASH [None]
  - WEIGHT INCREASED [None]
